FAERS Safety Report 23905530 (Version 1)
Quarter: 2024Q2

REPORT INFORMATION
  Report Type: Spontaneous
  Country: US (occurrence: US)
  Receive Date: 20240527
  Receipt Date: 20240527
  Transmission Date: 20240716
  Serious: Yes (Death)
  Sender: FDA-Public Use
  Company Number: US-JNJFOC-20240556459

PATIENT
  Age: 63 Year
  Sex: Female

DRUGS (4)
  1. REMICADE [Suspect]
     Active Substance: INFLIXIMAB
     Indication: Neurosarcoidosis
     Route: 041
  2. EVEROLIMUS [Concomitant]
     Active Substance: EVEROLIMUS
  3. TACROLIMUS [Concomitant]
     Active Substance: TACROLIMUS
  4. PREDNISONE [Concomitant]
     Active Substance: PREDNISONE
     Dosage: 60 MG DAILY TAPERING BY 5 MG EVERY 4 WEEKS
     Route: 048

REACTIONS (3)
  - Cholangitis [Fatal]
  - Septic shock [Fatal]
  - Off label use [Unknown]
